FAERS Safety Report 12398768 (Version 1)
Quarter: 2016Q2

REPORT INFORMATION
  Report Type: Spontaneous
  Country: US (occurrence: US)
  Receive Date: 20160524
  Receipt Date: 20160524
  Transmission Date: 20160815
  Serious: No
  Sender: FDA-Public Use
  Company Number: US-BAYER-2016-099445

PATIENT
  Age: 18 Year
  Sex: Female

DRUGS (1)
  1. MIRENA [Suspect]
     Active Substance: LEVONORGESTREL
     Indication: GENITAL HAEMORRHAGE
     Dosage: 20 MCG/24HR, CONT
     Route: 015
     Dates: start: 20160513

REACTIONS (6)
  - Vomiting [Not Recovered/Not Resolved]
  - Retching [Not Recovered/Not Resolved]
  - Procedural pain [Not Recovered/Not Resolved]
  - Nausea [Not Recovered/Not Resolved]
  - Dysstasia [Not Recovered/Not Resolved]
  - Impaired quality of life [None]
